FAERS Safety Report 20750135 (Version 1)
Quarter: 2022Q2

REPORT INFORMATION
  Report Type: Spontaneous
  Country: US (occurrence: None)
  Receive Date: 20220426
  Receipt Date: 20220426
  Transmission Date: 20220721
  Serious: Yes (Disabling)
  Sender: FDA-Public Use
  Company Number: None

PATIENT
  Age: 73 Year
  Sex: Female
  Weight: 57 kg

DRUGS (2)
  1. FIRDAPSE [Suspect]
     Active Substance: AMIFAMPRIDINE PHOSPHATE
     Indication: Myasthenic syndrome
     Dosage: OTHER FREQUENCY : EVERY 3 HOURS;?
     Route: 048
     Dates: start: 20190129, end: 20200623
  2. MESTINON [Concomitant]
     Active Substance: PYRIDOSTIGMINE BROMIDE

REACTIONS (6)
  - Asthenia [None]
  - Walking disability [None]
  - Mobility decreased [None]
  - Motor dysfunction [None]
  - Occipital neuralgia [None]
  - Paraesthesia [None]

NARRATIVE: CASE EVENT DATE: 20200501
